FAERS Safety Report 9170893 (Version 1)
Quarter: 2013Q1

REPORT INFORMATION
  Report Type: Spontaneous
  Country: US (occurrence: US)
  Receive Date: 20130319
  Receipt Date: 20130319
  Transmission Date: 20140127
  Serious: Yes (Death)
  Sender: FDA-Public Use
  Company Number: US-PFIZER INC-2013088336

PATIENT
  Age: 51 Year
  Sex: Male

DRUGS (1)
  1. CAMPTOSAR [Suspect]
     Indication: ADENOCARCINOMA PANCREAS
     Dosage: 190 MG, CYCLIC, EVERY 2 WEEKS
     Route: 042

REACTIONS (2)
  - Disease progression [Fatal]
  - Adenocarcinoma pancreas [Fatal]
